FAERS Safety Report 9547778 (Version 4)
Quarter: 2013Q4

REPORT INFORMATION
  Report Type: Spontaneous
  Country: CH (occurrence: None)
  Receive Date: 20130920
  Receipt Date: 20131217
  Transmission Date: 20140711
  Serious: Yes (Life-Threatening, Other)
  Sender: FDA-Public Use
  Company Number: 20130483

PATIENT
  Age: 36 Year
  Sex: Female

DRUGS (1)
  1. FERINJECT [Suspect]
     Indication: PREOPERATIVE CARE
     Dosage: 500 MG  IN 100 ML 15 MIN INTRAVENOUS DRIP?
     Route: 041
     Dates: start: 20130730, end: 20130730

REACTIONS (8)
  - Off label use [None]
  - Convulsion [None]
  - Infusion related reaction [None]
  - Unresponsive to stimuli [None]
  - Circulatory collapse [None]
  - Loss of consciousness [None]
  - Dizziness [None]
  - Hypotension [None]
